FAERS Safety Report 6812615-1 (Version None)
Quarter: 2010Q3

REPORT INFORMATION
  Report Type: 
  Country: None (occurrence: None)
  Receive Date: 20100701
  Receipt Date: 20100622
  Transmission Date: 20110219
  Serious: Yes (Other)
  Sender: FDA-Public Use
  Company Number: US-PFIZER INC-2010078089

PATIENT
  Sex: Female

DRUGS (1)
  1. LYRICA [Suspect]
     Indication: FIBROMYALGIA
     Dosage: UNK
     Route: 048
     Dates: start: 20100610, end: 20100616

REACTIONS (7)
  - DIZZINESS [None]
  - DYSPHAGIA [None]
  - EYE INFECTION VIRAL [None]
  - LYMPHOEDEMA [None]
  - PRURITUS [None]
  - RASH [None]
  - VISION BLURRED [None]
